FAERS Safety Report 5281449-4 (Version None)
Quarter: 2007Q1

REPORT INFORMATION
  Report Type: 
  Country: None (occurrence: None)
  Receive Date: 20070323
  Receipt Date: 20070323
  Transmission Date: 20070707
  Serious: Yes (Hospitalization)
  Sender: FDA-Public Use
  Company Number: None

PATIENT
  Age: 62 Year
  Sex: Male
  Weight: 80 kg

DRUGS (1)
  1. SEROQUEL [Suspect]
     Indication: AGITATION
     Dosage: 100MG QHS PO
     Route: 048
     Dates: start: 20070311, end: 20070324

REACTIONS (4)
  - AGITATION [None]
  - HEPATITIS [None]
  - ILL-DEFINED DISORDER [None]
  - SEDATION [None]
